FAERS Safety Report 5142311-0 (Version None)
Quarter: 2006Q4

REPORT INFORMATION
  Report Type: 
  Country: None (occurrence: None)
  Receive Date: 20061102
  Receipt Date: 20060926
  Transmission Date: 20070319
  Serious: Yes (Hospitalization)
  Sender: FDA-Public Use
  Company Number: US-KINGPHARMUSA00001-K200601324

PATIENT
  Age: 70 Year
  Sex: Male

DRUGS (2)
  1. KEMADRIN [Suspect]
     Dosage: 25 MG, SINGLE DOSE
     Route: 048
     Dates: start: 20060921, end: 20060921
  2. ALBUTEROL SPIROS [Concomitant]

REACTIONS (2)
  - UNEVALUABLE EVENT [None]
  - WRONG DRUG ADMINISTERED [None]
